FAERS Safety Report 5596840-6 (Version None)
Quarter: 2008Q1

REPORT INFORMATION
  Report Type: 
  Country: None (occurrence: None)
  Receive Date: 20080119
  Receipt Date: 20080114
  Transmission Date: 20080703
  Serious: Yes (Other)
  Sender: FDA-Public Use
  Company Number: US-PFIZER INC-2008004024

PATIENT
  Sex: Male
  Weight: 90.7 kg

DRUGS (7)
  1. GEODON [Suspect]
     Indication: NERVOUS SYSTEM DISORDER
  2. GEODON [Suspect]
     Indication: PSYCHOTIC DISORDER
  3. DEPAKOTE [Concomitant]
  4. PAXIL [Concomitant]
  5. INSULIN [Concomitant]
     Indication: TYPE 2 DIABETES MELLITUS
  6. TRICOR [Concomitant]
     Indication: HYPERLIPIDAEMIA
  7. LOVASTATIN [Concomitant]
     Indication: HYPERLIPIDAEMIA

REACTIONS (3)
  - CONFUSIONAL STATE [None]
  - DEPENDENCE [None]
  - DISORIENTATION [None]
